FAERS Safety Report 5661394-2 (Version None)
Quarter: 2008Q1

REPORT INFORMATION
  Report Type: 
  Country: None (occurrence: None)
  Receive Date: 20080311
  Receipt Date: 20080228
  Transmission Date: 20080703
  Serious: Yes (Other)
  Sender: FDA-Public Use
  Company Number: US-ELI_LILLY_AND_COMPANY-US200802006899

PATIENT
  Sex: Male

DRUGS (3)
  1. CYMBALTA [Suspect]
     Indication: NEUROPATHY PERIPHERAL
     Dates: start: 20070601
  2. REQUIP [Concomitant]
     Indication: RESTLESS LEGS SYNDROME
  3. CHOLESTEROL- AND TRIGLYCERIDE REDUCERS [Concomitant]

REACTIONS (7)
  - ABNORMAL DREAMS [None]
  - BACK PAIN [None]
  - FALL [None]
  - JOINT DISLOCATION [None]
  - LUMBAR VERTEBRAL FRACTURE [None]
  - NIGHTMARE [None]
  - SLEEP DISORDER [None]
